FAERS Safety Report 6250279-9 (Version None)
Quarter: 2009Q2

REPORT INFORMATION
  Report Type: 
  Country: None (occurrence: None)
  Receive Date: 20090625
  Receipt Date: 20090625
  Transmission Date: 20091009
  Serious: Yes (Life-Threatening)
  Sender: FDA-Public Use
  Company Number: None

PATIENT
  Age: 45 Year
  Sex: Female

DRUGS (2)
  1. LEVETIRACETAM [Suspect]
     Indication: COMPLEX PARTIAL SEIZURES
     Dosage: 1 TABLET TWICE A DAY FROM APPROX. 5/19 OR 5/20 UNTIL TODAY
  2. SIMVASTATIN [Concomitant]

REACTIONS (2)
  - AURA [None]
  - PRODUCT SUBSTITUTION ISSUE [None]
